FAERS Safety Report 23440696 (Version 1)
Quarter: 2024Q1

REPORT INFORMATION
  Report Type: Spontaneous
  Country: AT (occurrence: AT)
  Receive Date: 20240125
  Receipt Date: 20240125
  Transmission Date: 20240410
  Serious: Yes (Other)
  Sender: FDA-Public Use
  Company Number: AT-BoehringerIngelheim-2024-BI-003090

PATIENT
  Age: 61 Year
  Sex: Female

DRUGS (2)
  1. AFATINIB [Suspect]
     Active Substance: AFATINIB
     Indication: EGFR gene mutation
     Dosage: FORM STRENGTH: 30 MILLIGRAM
     Dates: start: 202111
  2. AFATINIB [Suspect]
     Active Substance: AFATINIB
     Indication: Non-small cell lung cancer

REACTIONS (4)
  - Malignant neoplasm progression [Unknown]
  - Pleural effusion [Unknown]
  - Hilar lymphadenopathy [Unknown]
  - Therapy partial responder [Unknown]
